FAERS Safety Report 4518221-6 (Version None)
Quarter: 2004Q4

REPORT INFORMATION
  Report Type: 
  Country: None (occurrence: None)
  Receive Date: 20041130
  Receipt Date: 20041116
  Transmission Date: 20050328
  Serious: Yes (Death)
  Sender: FDA-Public Use
  Company Number: US-2004-029508

PATIENT
  Age: 46 Year
  Sex: Male
  Weight: 93.4 kg

DRUGS (6)
  1. BETASERON [Suspect]
     Indication: MULTIPLE SCLEROSIS
     Dosage: 8 MIU, EVERY 2D, SUBCUTANEOUS
     Route: 058
     Dates: start: 19960101, end: 20040720
  2. NAPROXEN SODIUM        (NAPRELAN) [Concomitant]
  3. BACLOFEN [Concomitant]
  4. CYTOXAN [Concomitant]
  5. SOLU-MEDROL [Concomitant]
  6. TIZANIDINE (TIZANIDINE) [Concomitant]

REACTIONS (1)
  - CARDIAC FAILURE [None]
